FAERS Safety Report 12054656 (Version 1)
Quarter: 2016Q1

REPORT INFORMATION
  Report Type: Spontaneous
  Country: US (occurrence: US)
  Receive Date: 20160209
  Receipt Date: 20160209
  Transmission Date: 20160526
  Serious: No
  Sender: FDA-Public Use
  Company Number: US-ABBVIE-15P-163-1468136-00

PATIENT

DRUGS (1)
  1. HUMIRA [Suspect]
     Active Substance: ADALIMUMAB
     Indication: CROHN^S DISEASE
     Route: 065

REACTIONS (6)
  - Frequent bowel movements [Unknown]
  - Migraine [Unknown]
  - Fatigue [Unknown]
  - Haematochezia [Unknown]
  - Muscle spasms [Unknown]
  - Mucous stools [Unknown]
